FAERS Safety Report 5928024-3 (Version None)
Quarter: 2008Q4

REPORT INFORMATION
  Report Type: 
  Country: None (occurrence: None)
  Receive Date: 20081021
  Receipt Date: 20081007
  Transmission Date: 20090506
  Serious: Yes (Death, Hospitalization)
  Sender: FDA-Public Use
  Company Number: A-NJ2008-21864

PATIENT
  Age: 74 Year
  Sex: Female

DRUGS (3)
  1. VENTAVIS [Suspect]
     Indication: PULMONARY HYPERTENSION
     Dosage: UNK, UNK, RESPIRATORY
     Route: 055
     Dates: start: 20080616
  2. TRACLEER [Suspect]
     Indication: PULMONARY HYPERTENSION
     Dosage: ORAL
     Route: 048
     Dates: start: 20080421
  3. REVATIO [Concomitant]

REACTIONS (1)
  - CARDIO-RESPIRATORY ARREST [None]
